FAERS Safety Report 5397918-2 (Version None)
Quarter: 2007Q3

REPORT INFORMATION
  Report Type: 
  Country: None (occurrence: None)
  Receive Date: 20070726
  Receipt Date: 20070720
  Transmission Date: 20080115
  Serious: Yes (Death, Life-Threatening, Other)
  Sender: FDA-Public Use
  Company Number: TH-ASTRAZENECA-2004AP02537

PATIENT
  Age: 38 Year
  Sex: Female

DRUGS (1)
  1. MARCAINE [Suspect]
     Indication: SPINAL ANAESTHESIA
     Route: 037
     Dates: start: 20040227, end: 20040227

REACTIONS (6)
  - CARDIAC ARREST [None]
  - CONVULSION [None]
  - HYPOTENSION [None]
  - PULMONARY EMBOLISM [None]
  - TONIC CONVULSION [None]
  - VENTRICULAR FIBRILLATION [None]
